FAERS Safety Report 5217345-8 (Version None)
Quarter: 2007Q1

REPORT INFORMATION
  Report Type: 
  Country: None (occurrence: None)
  Receive Date: 20070124
  Receipt Date: 20060116
  Transmission Date: 20070707
  Serious: No
  Sender: FDA-Public Use
  Company Number: US-GLAXOSMITHKLINE-A0589408A

PATIENT
  Age: 46 Year
  Sex: Female

DRUGS (2)
  1. PAXIL CR [Suspect]
     Indication: DEPRESSION
     Dosage: 12.5MG PER DAY
     Route: 048
     Dates: start: 20051201
  2. NO CONCURRENT MEDICATION [Concomitant]

REACTIONS (5)
  - DRUG INEFFECTIVE [None]
  - FRUSTRATION [None]
  - IMPATIENCE [None]
  - INSOMNIA [None]
  - NIGHT SWEATS [None]
